FAERS Safety Report 14679748 (Version 1)
Quarter: 2018Q1

REPORT INFORMATION
  Report Type: Spontaneous
  Country: TR (occurrence: TR)
  Receive Date: 20180326
  Receipt Date: 20180326
  Transmission Date: 20180509
  Serious: Yes (Hospitalization, Other)
  Sender: FDA-Public Use
  Company Number: TR-TELIGENT, INC-IGIL20180161

PATIENT
  Age: 40 Year
  Sex: Male

DRUGS (1)
  1. CEFUROXIME SODIUM. [Suspect]
     Active Substance: CEFUROXIME SODIUM
     Indication: PRODUCT USED FOR UNKNOWN INDICATION
     Dosage: 500 MG
     Route: 048

REACTIONS (6)
  - Myocardial ischaemia [Recovered/Resolved]
  - Arteriosclerosis coronary artery [Recovered/Resolved]
  - Heart injury [Recovered/Resolved]
  - Chest pain [Recovered/Resolved]
  - Arteriospasm coronary [Recovered/Resolved]
  - Kounis syndrome [Recovered/Resolved]
